FAERS Safety Report 20851754 (Version 1)
Quarter: 2022Q2

REPORT INFORMATION
  Report Type: Spontaneous
  Country: DE (occurrence: DE)
  Receive Date: 20220520
  Receipt Date: 20220520
  Transmission Date: 20220721
  Serious: Yes (Other)
  Sender: FDA-Public Use
  Company Number: DE-BFARM-22002954

PATIENT
  Age: 83 Year
  Sex: Male
  Weight: 86 kg

DRUGS (15)
  1. ACYCLOVIR [Suspect]
     Active Substance: ACYCLOVIR
     Indication: Product used for unknown indication
     Dosage: 200 MILLIGRAM, TWO TIMES A DAY (1-0-1)
     Route: 065
  2. SULFAMETHOXAZOLE\TRIMETHOPRIM [Suspect]
     Active Substance: SULFAMETHOXAZOLE\TRIMETHOPRIM
     Indication: Prophylaxis
     Dosage: 960 MILLIGRAM (EVERY 3 WEEKS) (7 TIMES APPLICATION, 3/WEEK 960 MG)
     Route: 065
     Dates: start: 20220404, end: 20220418
  3. ALFUZOSIN STADA [Concomitant]
     Indication: Product used for unknown indication
     Dosage: UNK
     Route: 065
  4. ASPIRIN [Concomitant]
     Active Substance: ASPIRIN
     Indication: Anticoagulant therapy
     Dosage: 100 MILLIGRAM, ONCE A DAY (1-0-0-0)
     Route: 065
  5. BETAVERT N [Concomitant]
     Indication: Product used for unknown indication
     Dosage: 0.5 DOSAGE FORM, ONCE A DAY (0.5-0-0-0)
     Route: 065
  6. CANDESARTAN CILEXETIL [Concomitant]
     Active Substance: CANDESARTAN CILEXETIL
     Indication: Blood pressure measurement
     Dosage: 1.5 DOSAGE FORM, ONCE A DAY (1-0-0.5-0)
     Route: 065
  7. CLOPIDOGREL DENK [Concomitant]
     Indication: Product used for unknown indication
     Dosage: UNK (POSSIBLY AGAIN)
     Route: 065
  8. DEXAMETHASONE [Concomitant]
     Active Substance: DEXAMETHASONE
     Indication: Product used for unknown indication
     Dosage: 16 MILLIGRAM, EVERY WEEK (ONCE A WEEK)
     Route: 065
  9. DARATUMUMAB [Concomitant]
     Active Substance: DARATUMUMAB
     Indication: Product used for unknown indication
     Dosage: UNK (ONCE A WEEK)
     Route: 065
  10. LENALIDOMIDE [Concomitant]
     Active Substance: LENALIDOMIDE
     Indication: Plasmacytoma
     Dosage: 15 MILLIGRAM (0-0-1 (EVERY 2 DAYS))
     Route: 065
  11. PANTOPRAZOLE SODIUM [Concomitant]
     Active Substance: PANTOPRAZOLE SODIUM
     Indication: Product used for unknown indication
     Dosage: 40 MILLIGRAM, ONCE A DAY (1-0-0)
     Route: 065
  12. HERBALS [Concomitant]
     Active Substance: HERBALS
     Indication: Prostatic disorder
     Dosage: 1 DOSAGE FORM, ONCE A DAY (1-0-0-0)
     Route: 065
  13. ROSUVASTATIN [Concomitant]
     Active Substance: ROSUVASTATIN
     Indication: Blood cholesterol abnormal
     Dosage: 20 MILLIGRAM, ONCE A DAY (0-0-1-0)
     Route: 065
  14. RABEPRAZOLE [Concomitant]
     Active Substance: RABEPRAZOLE
     Indication: Product used for unknown indication
     Dosage: UNK
     Route: 065
  15. DIMENHYDRINATE [Concomitant]
     Active Substance: DIMENHYDRINATE
     Indication: Product used for unknown indication
     Dosage: UNK UNK, AS NECESSARY (50 MG B.COND)
     Route: 065

REACTIONS (4)
  - Pruritus [Recovered/Resolved]
  - Photosensitivity reaction [Unknown]
  - Skin swelling [Recovered/Resolved]
  - Hypersensitivity [Recovered/Resolved]

NARRATIVE: CASE EVENT DATE: 20220414
